FAERS Safety Report 10988967 (Version 2)
Quarter: 2015Q2

REPORT INFORMATION
  Report Type: Spontaneous
  Country: NO (occurrence: NO)
  Receive Date: 20150405
  Receipt Date: 20150427
  Transmission Date: 20150821
  Serious: Yes (Death)
  Sender: FDA-Public Use
  Company Number: NO-WATSON-2015-07007

PATIENT
  Age: 45 Year
  Sex: Male

DRUGS (1)
  1. STILNOCT [Suspect]
     Active Substance: ZOLPIDEM TARTRATE
     Indication: PRODUCT USED FOR UNKNOWN INDICATION
     Dosage: UNK; UNKNOWN DOSAGE AND DURATION OF TREATMENT
     Route: 065
     Dates: end: 201412

REACTIONS (1)
  - Impaired driving ability [Fatal]

NARRATIVE: CASE EVENT DATE: 201412
